FAERS Safety Report 7493353-1 (Version None)
Quarter: 2011Q2

REPORT INFORMATION
  Report Type: 
  Country: None (occurrence: None)
  Receive Date: 20110519
  Receipt Date: 20110519
  Transmission Date: 20111010
  Serious: Yes (Hospitalization)
  Sender: FDA-Public Use
  Company Number: None

PATIENT
  Age: 26 Year
  Sex: Female
  Weight: 67.3 kg

DRUGS (1)
  1. MEROPENEM [Suspect]
     Indication: PSEUDOMONAS INFECTION
     Dosage: 1GM Q8H IV BOLUS
     Route: 040
     Dates: start: 20110415, end: 20110418

REACTIONS (3)
  - NEUTROPENIA [None]
  - HYPERSENSITIVITY [None]
  - PANCYTOPENIA [None]
